FAERS Safety Report 11132446 (Version 4)
Quarter: 2018Q4

REPORT INFORMATION
  Report Type: Report from Study
  Country: JP (occurrence: JP)
  Receive Date: 20150522
  Receipt Date: 20181023
  Transmission Date: 20190204
  Serious: Yes (Death, Hospitalization)
  Sender: FDA-Public Use
  Company Number: JP-HORIZON-BUP-0002-2015

PATIENT
  Age: 1 Year
  Sex: Male
  Weight: 12.89 kg

DRUGS (11)
  1. BUPHENYL [Suspect]
     Active Substance: SODIUM PHENYLBUTYRATE
     Indication: ORNITHINE TRANSCARBAMOYLASE DEFICIENCY
     Dosage: 3.5 G, QD
     Route: 048
     Dates: start: 20130613, end: 20141017
  2. L-CITRULLINE [Concomitant]
     Active Substance: CITRULLINE
     Indication: ORNITHINE TRANSCARBAMOYLASE DEFICIENCY
     Dosage: 3500 MG/DAY ORAL CONTINUATION AND UNKNOWN DOSE FROM 15-OCT-2014 TO 17-OCT-2014
  3. BIOTIN [Concomitant]
     Active Substance: BIOTIN
     Dates: start: 20141015, end: 20141017
  4. SODIUM BENZOATE [Concomitant]
     Active Substance: SODIUM BENZOATE
     Indication: ORNITHINE TRANSCARBAMOYLASE DEFICIENCY
     Dosage: 2000 MG/DAY ORAL UNTIL 23-JUL-2014, UNKNOWN DOSE VIA INTRAVENOUS DRIP FROM 15-OCT- TO 17-OCT-2014
  5. CARNITINE CHLORIDE [Concomitant]
     Active Substance: CARNITINE CHLORIDE
     Indication: ORNITHINE TRANSCARBAMOYLASE DEFICIENCY
     Dosage: 1200 MG/DAY ORAL CONTINUATION AND 1200 MG OTHER ROUTE FROM 15-OCT-2014 UNTIL 17-OCT-2014
  6. TAKEPRON [Concomitant]
     Active Substance: LANSOPRAZOLE
     Indication: GASTROOESOPHAGEAL REFLUX DISEASE
     Route: 048
  7. BENZALIN [Concomitant]
     Active Substance: NITRAZEPAM
     Indication: EPILEPSY
     Dosage: 3 MG ORAL FROM 27-DEC-2013 CONTINUATION, 3 MG VIA OTHER ROUTE FROM 15-OCT-2014 TO 17-OCT-2014
  8. PHENOBAL ELIXIR [Concomitant]
     Indication: EPILEPSY
     Dosage: 12 ML CONTINUATION
     Route: 048
  9. ARGI-U [Concomitant]
     Indication: ORNITHINE TRANSCARBAMOYLASE DEFICIENCY
     Route: 041
     Dates: start: 20141015, end: 20141017
  10. PHYSIOSOL NO.3 [Concomitant]
     Indication: ORNITHINE TRANSCARBAMOYLASE DEFICIENCY
     Route: 041
     Dates: start: 20141015, end: 20141017
  11. PHENOBAL [Concomitant]
     Active Substance: PHENOBARBITAL
     Indication: EPILEPSY
     Dosage: 12 ML
     Dates: start: 20141015, end: 20141017

REACTIONS (3)
  - Multiple organ dysfunction syndrome [Fatal]
  - Dermatitis atopic [Recovering/Resolving]
  - Hyperammonaemia [Fatal]

NARRATIVE: CASE EVENT DATE: 20140110
